FAERS Safety Report 6195965-4 (Version None)
Quarter: 2009Q2

REPORT INFORMATION
  Report Type: 
  Country: None (occurrence: None)
  Receive Date: 20090520
  Receipt Date: 20090514
  Transmission Date: 20091009
  Serious: Yes (Other)
  Sender: FDA-Public Use
  Company Number: PHHY2009MX19132

PATIENT
  Sex: Male

DRUGS (3)
  1. TEGRETOL [Suspect]
     Indication: EPILEPSY
     Dosage: UNK
     Route: 048
     Dates: start: 20071001
  2. TEGRETOL [Suspect]
     Dosage: 2 TABLETS PER DAY
     Route: 048
     Dates: start: 20090430
  3. EPAMIN [Concomitant]

REACTIONS (1)
  - CONVULSION [None]
